FAERS Safety Report 20878049 (Version 1)
Quarter: 2022Q2

REPORT INFORMATION
  Report Type: Spontaneous
  Country: US (occurrence: None)
  Receive Date: 20220525
  Receipt Date: 20220525
  Transmission Date: 20220721
  Serious: Yes (Life-Threatening, Hospitalization)
  Sender: FDA-Public Use
  Company Number: None

PATIENT
  Age: 72 Year
  Sex: Female
  Weight: 45 kg

DRUGS (5)
  1. AMOXICILLIN [Suspect]
     Active Substance: AMOXICILLIN
     Indication: Urinary tract infection
     Dosage: OTHER QUANTITY : 14 TABLET(S);?FREQUENCY : EVERY 12 HOURS;?
     Route: 048
     Dates: start: 20220511, end: 20220511
  2. COCONUT PILLS [Concomitant]
  3. CRANBERRY PILLS [Concomitant]
  4. VITAMIN D [Concomitant]
     Active Substance: VITAMIN D NOS
  5. VITAMIN C [Concomitant]
     Active Substance: ASCORBIC ACID

REACTIONS (12)
  - Rash [None]
  - Pruritus [None]
  - Syncope [None]
  - Tremor [None]
  - Hyperhidrosis [None]
  - Loss of consciousness [None]
  - Head injury [None]
  - Unresponsive to stimuli [None]
  - Blood pressure increased [None]
  - Swollen tongue [None]
  - Pharyngeal swelling [None]
  - Near death experience [None]

NARRATIVE: CASE EVENT DATE: 20220511
